FAERS Safety Report 11256645 (Version 1)
Quarter: 2015Q3

REPORT INFORMATION
  Report Type: Spontaneous
  Country: US (occurrence: US)
  Receive Date: 20150709
  Receipt Date: 20150709
  Transmission Date: 20151125
  Serious: Yes (Other)
  Sender: FDA-Public Use
  Company Number: US-MUNDIPHARMA DS AND PHARMACOVIGILANCE-USA-2014-0115529

PATIENT
  Sex: Male

DRUGS (1)
  1. BUTRANS [Suspect]
     Active Substance: BUPRENORPHINE
     Indication: NEURALGIA
     Dosage: 20 MCG/HR, WEEKLY
     Route: 062
     Dates: start: 20140701, end: 20140702

REACTIONS (4)
  - Pallor [Unknown]
  - Vomiting [Recovered/Resolved]
  - Nausea [Unknown]
  - Drug hypersensitivity [Unknown]
